FAERS Safety Report 25280722 (Version 5)
Quarter: 2025Q2

REPORT INFORMATION
  Report Type: Spontaneous
  Country: US (occurrence: US)
  Receive Date: 20250508
  Receipt Date: 20250614
  Transmission Date: 20250716
  Serious: No
  Sender: Haleon PLC
  Company Number: US-HALEON-2241118

PATIENT
  Age: 34 Year
  Sex: Female

DRUGS (1)
  1. NICODERM CQ [Suspect]
     Active Substance: NICOTINE
     Indication: Smoking cessation therapy
     Route: 061

REACTIONS (5)
  - Nicotine dependence [Unknown]
  - Condition aggravated [Unknown]
  - Product adhesion issue [Unknown]
  - Skin irritation [Unknown]
  - Drug ineffective [Unknown]
